FAERS Safety Report 4952343-0 (Version None)
Quarter: 2006Q1

REPORT INFORMATION
  Report Type: 
  Country: None (occurrence: None)
  Receive Date: 20060131
  Receipt Date: 20050623
  Transmission Date: 20060701
  Serious: Yes (Hospitalization)
  Sender: FDA-Public Use
  Company Number: WAES  0506USA03451

PATIENT
  Sex: 0

DRUGS (1)
  1. INVANZ [Suspect]
     Indication: INFECTION

REACTIONS (1)
  - CONVULSION [None]
